FAERS Safety Report 13449967 (Version 1)
Quarter: 2017Q2

REPORT INFORMATION
  Report Type: Spontaneous
  Country: US (occurrence: US)
  Receive Date: 20170417
  Receipt Date: 20170417
  Transmission Date: 20170830
  Serious: No
  Sender: FDA-Public Use
  Company Number: US-BION-20160393

PATIENT
  Sex: Male

DRUGS (1)
  1. NAPROXEN SODIUM CAPSULES, 220 MG [Suspect]
     Active Substance: NAPROXEN SODIUM
     Indication: ANALGESIC THERAPY
     Dosage: 1-2 DF AS NEEDED
     Route: 048

REACTIONS (6)
  - Incorrect product storage [Unknown]
  - Product taste abnormal [Unknown]
  - Stomatitis [Unknown]
  - Glossitis [Unknown]
  - Product colour issue [Unknown]
  - Product physical issue [Unknown]

NARRATIVE: CASE EVENT DATE: 20160811
